FAERS Safety Report 12634486 (Version 1)
Quarter: 2016Q3

REPORT INFORMATION
  Report Type: Spontaneous
  Country: NL (occurrence: NL)
  Receive Date: 20160808
  Receipt Date: 20160808
  Transmission Date: 20161109
  Serious: Yes (Hospitalization)
  Sender: FDA-Public Use
  Company Number: PHHY2016NL106038

PATIENT
  Age: 29 Year
  Sex: Male
  Weight: 75 kg

DRUGS (1)
  1. DESLORATADINE SANDOZ [Suspect]
     Active Substance: DESLORATADINE
     Indication: HYPERSENSITIVITY
     Dosage: 5 MG, QD (ONCE DAILY 1 PIECE, EXTRA INFO: WHEN UPPERCUT 2 PILLS)
     Route: 048
     Dates: start: 20140601, end: 20160216

REACTIONS (1)
  - Prostatitis [Recovered/Resolved with Sequelae]

NARRATIVE: CASE EVENT DATE: 20150401
